FAERS Safety Report 24139895 (Version 1)
Quarter: 2024Q3

REPORT INFORMATION
  Report Type: Spontaneous
  Country: GB (occurrence: GB)
  Receive Date: 20240726
  Receipt Date: 20240726
  Transmission Date: 20241017
  Serious: Yes (Death, Hospitalization)
  Sender: ROCHE
  Company Number: None

PATIENT
  Sex: Female

DRUGS (7)
  1. RITUXIMAB [Suspect]
     Active Substance: RITUXIMAB
     Indication: Product used for unknown indication
     Route: 065
  2. METHOTREXATE [Concomitant]
     Active Substance: METHOTREXATE
     Route: 050
  3. FOLIC ACID [Concomitant]
     Active Substance: FOLIC ACID
     Route: 050
  4. AMILORIDE HYDROCHLORIDE\HYDROCHLOROTHIAZIDE [Concomitant]
     Active Substance: AMILORIDE HYDROCHLORIDE\HYDROCHLOROTHIAZIDE
     Route: 050
  5. PREGABALIN [Concomitant]
     Active Substance: PREGABALIN
     Route: 050
  6. CO-DYDRAMOL [Concomitant]
     Active Substance: ACETAMINOPHEN\DIHYDROCODEINE
     Route: 050
  7. CALCIUM CARBONATE\CHOLECALCIFEROL [Concomitant]
     Active Substance: CALCIUM CARBONATE\CHOLECALCIFEROL
     Route: 050

REACTIONS (1)
  - Myocardial injury [Fatal]
